FAERS Safety Report 9313454 (Version 1)
Quarter: 2013Q2

REPORT INFORMATION
  Report Type: Spontaneous
  Country: BR (occurrence: BR)
  Receive Date: 20130528
  Receipt Date: 20130528
  Transmission Date: 20140414
  Serious: Yes (Other)
  Sender: FDA-Public Use
  Company Number: BR-ELI_LILLY_AND_COMPANY-BR201305005729

PATIENT
  Age: 52 Year
  Sex: Female
  Weight: 67 kg

DRUGS (5)
  1. FORTEO [Suspect]
     Indication: OSTEOPOROSIS
     Dosage: 20 UG, QD
     Route: 058
     Dates: start: 20130319
  2. LANTUS [Concomitant]
     Route: 065
  3. HUMALOG [Concomitant]
     Route: 065
  4. METFORMINA [Concomitant]
     Dosage: 350 MG, TID
     Route: 065
  5. DIOVAN [Concomitant]
     Indication: HYPERTENSION
     Dosage: 1 DF, EACH MORNING
     Route: 065

REACTIONS (2)
  - Femur fracture [Recovered/Resolved]
  - Lower limb fracture [Recovered/Resolved]
